FAERS Safety Report 16667359 (Version 1)
Quarter: 2019Q3

REPORT INFORMATION
  Report Type: Spontaneous
  Country: FR (occurrence: FR)
  Receive Date: 20190805
  Receipt Date: 20190805
  Transmission Date: 20191004
  Serious: Yes (Hospitalization, Disabling)
  Sender: FDA-Public Use
  Company Number: FR-PFIZER INC-2019325634

PATIENT
  Age: 18 Year
  Sex: Female

DRUGS (9)
  1. NORADRENALINE HOSPIRA [Suspect]
     Active Substance: NOREPINEPHRINE BITARTRATE
     Indication: CIRCULATORY COLLAPSE
     Dosage: 2 UG/KG, EVERY MINUTE
     Route: 042
     Dates: start: 20190422, end: 20190422
  2. PROPOFOL. [Concomitant]
     Active Substance: PROPOFOL
     Indication: ANAESTHESIA
     Dosage: 100 MG, 1X/DAY
     Route: 042
     Dates: start: 20190422, end: 20190422
  3. ROCURONIUM BROMIDE. [Concomitant]
     Active Substance: ROCURONIUM BROMIDE
     Indication: ANAESTHESIA
     Dosage: 50 MG, 1X/DAY
     Route: 042
     Dates: start: 20190422, end: 20190422
  4. SUFENTANIL [Concomitant]
     Active Substance: SUFENTANIL
     Indication: ANALGESIC THERAPY
     Dosage: 20 UG, 1X/DAY
     Route: 042
     Dates: start: 20190422, end: 20190422
  5. ISOFUNDINE [Concomitant]
     Active Substance: CALCIUM CHLORIDE\MAGNESIUM CHLORIDE\MALIC ACID\POTASSIUM CHLORIDE\SODIUM ACETATE\SODIUM CHLORIDE
     Indication: DEHYDRATION
     Dosage: 500 ML, 1X/DAY
     Route: 042
     Dates: start: 20190422, end: 20190422
  6. CEFOTAXIME [Concomitant]
     Active Substance: CEFOTAXIME SODIUM
     Indication: ANTIBIOTIC THERAPY
     Dosage: UNK
     Route: 065
     Dates: start: 20190422, end: 20190505
  7. ROCEPHINE [Concomitant]
     Active Substance: CEFTRIAXONE SODIUM
     Indication: PYELONEPHRITIS
     Dosage: 1 G, 1X/DAY
     Route: 042
     Dates: start: 201904, end: 201904
  8. NORADRENALINE HOSPIRA [Suspect]
     Active Substance: NOREPINEPHRINE BITARTRATE
     Dosage: 0.5 UG/KG, EVERY MINUTE
     Route: 042
     Dates: start: 20190422, end: 20190422
  9. GENTAMICIN. [Concomitant]
     Active Substance: GENTAMICIN
     Indication: PYELONEPHRITIS
     Dosage: 160 MG, DAILY
     Route: 042
     Dates: start: 201904, end: 201904

REACTIONS (1)
  - Extremity necrosis [Recovered/Resolved with Sequelae]

NARRATIVE: CASE EVENT DATE: 20190423
